FAERS Safety Report 20650589 (Version 1)
Quarter: 2022Q1

REPORT INFORMATION
  Report Type: Spontaneous
  Country: US (occurrence: US)
  Receive Date: 20220329
  Receipt Date: 20220329
  Transmission Date: 20220424
  Serious: No
  Sender: FDA-Public Use
  Company Number: US-ORGANON-O2203USA000303

PATIENT
  Age: 29 Year
  Sex: Female
  Weight: 191.38 kg

DRUGS (1)
  1. NEXPLANON [Suspect]
     Active Substance: ETONOGESTREL
     Dosage: 1 IMPLANT IN LEFT ARM (68 MILLIGRAM EVERY 3 YEARS)
     Route: 059
     Dates: start: 201911, end: 20220301

REACTIONS (4)
  - Device breakage [Recovered/Resolved]
  - Complication of device removal [Recovered/Resolved]
  - Implant site scar [Unknown]
  - Implant site fibrosis [Unknown]

NARRATIVE: CASE EVENT DATE: 20220301
